FAERS Safety Report 24362047 (Version 2)
Quarter: 2024Q3

REPORT INFORMATION
  Report Type: Spontaneous
  Country: SG (occurrence: SG)
  Receive Date: 20240925
  Receipt Date: 20240926
  Transmission Date: 20241016
  Serious: Yes (Other)
  Sender: REGENERON
  Company Number: SG-BAYER-2024A133935

PATIENT
  Sex: Male

DRUGS (1)
  1. EYLEA HD [Suspect]
     Active Substance: AFLIBERCEPT
     Indication: Product used for unknown indication
     Dosage: 8 MG, ONCE; SOLUTION FOR INJECTION; 114.3 MG/ML

REACTIONS (1)
  - Therapeutic product effect decreased [Not Recovered/Not Resolved]
